FAERS Safety Report 10943708 (Version 2)
Quarter: 2015Q2

REPORT INFORMATION
  Report Type: Spontaneous
  Country: US (occurrence: US)
  Receive Date: 20150322
  Receipt Date: 20150526
  Transmission Date: 20150821
  Serious: No
  Sender: FDA-Public Use
  Company Number: US-JNJFOC-20140912965

PATIENT
  Age: 52 Year
  Sex: Female
  Weight: 113.4 kg

DRUGS (1)
  1. RISPERDAL CONSTA [Suspect]
     Active Substance: RISPERIDONE
     Indication: SCHIZOPHRENIA
     Route: 030
     Dates: start: 20081112

REACTIONS (5)
  - Liquid product physical issue [Unknown]
  - Product physical consistency issue [Unknown]
  - Drug dose omission [Unknown]
  - Incorrect product storage [Unknown]
  - Paranoia [Recovered/Resolved]

NARRATIVE: CASE EVENT DATE: 20140912
